FAERS Safety Report 4332547-0 (Version None)
Quarter: 2004Q1

REPORT INFORMATION
  Report Type: 
  Country: None (occurrence: None)
  Receive Date: 20040330
  Receipt Date: 20040317
  Transmission Date: 20041129
  Serious: Yes (Hospitalization)
  Sender: FDA-Public Use
  Company Number: GB-JNJFOC-20040305774

PATIENT
  Age: 54 Year
  Sex: Female

DRUGS (3)
  1. RISPERDAL [Suspect]
     Indication: SCHIZOPHRENIA
     Dosage: ORAL
     Route: 048
     Dates: start: 20031021
  2. ARIPIPRAZOLE (ARIPIPRAZOLE) [Suspect]
     Indication: SCHIZOPHRENIA
     Dosage: 15 MG, 1 IN 1 DAY, ORAL
     Route: 048
     Dates: start: 20040218, end: 20040229
  3. ACETAMINOPHEN [Suspect]
     Indication: DRUG USE FOR UNKNOWN INDICATION

REACTIONS (7)
  - OVERDOSE [None]
  - PARANOIA [None]
  - PSYCHOTIC DISORDER [None]
  - SUICIDE ATTEMPT [None]
  - SUSPICIOUSNESS [None]
  - URINARY INCONTINENCE [None]
  - VOMITING [None]
